FAERS Safety Report 5238362-8 (Version None)
Quarter: 2007Q1

REPORT INFORMATION
  Report Type: 
  Country: None (occurrence: None)
  Receive Date: 20070212
  Receipt Date: 20070212
  Transmission Date: 20070707
  Serious: Yes (Disabling)
  Sender: FDA-Public Use
  Company Number: None

PATIENT
  Sex: Female

DRUGS (3)
  1. HURRICAINE SPRAY  N/A BEUTLICH PHARMACEUTICALS [Suspect]
     Indication: LOCAL ANAESTHESIA
     Dosage: PER MD ONE TIME TOP
     Route: 061
     Dates: start: 20070131, end: 20070131
  2. ABCO HIGH TEMP CAUTERY FINE TIP ABCO [Suspect]
     Indication: VASCULAR CAUTERISATION
     Dosage: SINGLE USE DEVICE TOP
     Route: 061
     Dates: start: 20070131, end: 20070131
  3. ABCO HIGH TEMP CAUTERY FINE TIP ABCO [Suspect]
     Indication: WOUND DEBRIDEMENT
     Dosage: SINGLE USE DEVICE TOP
     Route: 061
     Dates: start: 20070131, end: 20070131

REACTIONS (2)
  - BURNS SECOND DEGREE [None]
  - IATROGENIC INJURY [None]
